FAERS Safety Report 16418634 (Version 1)
Quarter: 2019Q2

REPORT INFORMATION
  Report Type: Spontaneous
  Country: SE (occurrence: SE)
  Receive Date: 20190612
  Receipt Date: 20190612
  Transmission Date: 20190711
  Serious: Yes (Other)
  Sender: FDA-Public Use
  Company Number: SE-TEVA-2019-SE-1060257

PATIENT
  Sex: Male

DRUGS (1)
  1. ESOMEPRAZOL ACTAVIS [Suspect]
     Active Substance: ESOMEPRAZOLE
     Route: 065

REACTIONS (2)
  - Cutaneous symptom [Unknown]
  - Mucosal disorder [Unknown]
